FAERS Safety Report 8560160-8 (Version None)
Quarter: 2012Q3

REPORT INFORMATION
  Report Type: 
  Country: None (occurrence: None)
  Receive Date: 20120802
  Receipt Date: 20120725
  Transmission Date: 20120928
  Serious: Yes (Hospitalization)
  Sender: FDA-Public Use
  Company Number: JP-VERTEX PHARMACEUTICALS INC.-AE-2012-003626

PATIENT
  Age: 57 Year
  Sex: Female

DRUGS (76)
  1. FULMETA: OINTMENT [Concomitant]
     Route: 061
     Dates: start: 20120318, end: 20120318
  2. FULMETA: OINTMENT [Concomitant]
     Route: 061
     Dates: start: 20120516, end: 20120516
  3. CLOBETASOL PROPIONATE [Concomitant]
     Route: 061
     Dates: start: 20120317, end: 20120317
  4. CLOBETASOL PROPIONATE [Concomitant]
     Route: 061
     Dates: start: 20120321, end: 20120321
  5. KINDAVATE [Concomitant]
     Route: 061
     Dates: start: 20120314, end: 20120314
  6. ZOLPIDEM [Concomitant]
     Route: 048
     Dates: start: 20120405, end: 20120405
  7. AZUNOL 5 P [Concomitant]
     Route: 048
     Dates: start: 20120309, end: 20120309
  8. EKSALB [Concomitant]
     Route: 051
     Dates: start: 20120324, end: 20120324
  9. ALMARARL [Concomitant]
     Route: 048
     Dates: start: 20120412, end: 20120429
  10. PREDNISOLONE [Concomitant]
     Dates: start: 20120408, end: 20120410
  11. PEG-INTRON [Concomitant]
     Route: 058
     Dates: start: 20120315, end: 20120315
  12. REBETOL [Concomitant]
     Indication: HEPATITIS C
     Route: 048
     Dates: start: 20120126, end: 20120201
  13. PROMAC [Concomitant]
     Route: 048
     Dates: start: 20120301, end: 20120307
  14. MOTILIUM [Concomitant]
     Route: 048
     Dates: start: 20120301, end: 20120321
  15. LANSOPRAZOLE [Concomitant]
     Route: 048
     Dates: start: 20120516, end: 20120516
  16. CLOBETASOL PROPIONATE [Concomitant]
     Route: 061
     Dates: start: 20120308, end: 20120308
  17. CLOBETASOL PROPIONATE [Concomitant]
     Route: 061
     Dates: start: 20120326, end: 20120326
  18. ATARAX [Concomitant]
     Dates: start: 20120419, end: 20120425
  19. RIVOTRIL [Concomitant]
     Route: 048
     Dates: start: 20120412, end: 20120412
  20. PREDNISOLONE [Concomitant]
     Indication: ADVERSE EVENT
     Route: 048
     Dates: start: 20120308, end: 20120311
  21. PREDNISOLONE [Concomitant]
     Dates: start: 20120419, end: 20120425
  22. PREDNISOLONE [Concomitant]
     Dates: start: 20120509, end: 20120515
  23. PREDNISOLONE [Concomitant]
     Dates: start: 20120517, end: 20120521
  24. TELAVIC (TELAPREVIR) [Suspect]
     Route: 048
     Dates: start: 20120315, end: 20120419
  25. PEG-INTRON [Concomitant]
     Route: 058
     Dates: start: 20120202
  26. PEG-INTRON [Concomitant]
     Dates: start: 20120322, end: 20120426
  27. FULMETA: OINTMENT [Concomitant]
     Route: 061
     Dates: start: 20120502, end: 20120502
  28. FULMETA: OINTMENT [Concomitant]
     Route: 061
     Dates: start: 20120509, end: 20120509
  29. LANSOPRAZOLE [Concomitant]
     Route: 048
     Dates: start: 20120402, end: 20120425
  30. CLOBETASOL PROPIONATE [Concomitant]
     Route: 061
     Dates: start: 20120309, end: 20120309
  31. CLOBETASOL PROPIONATE [Concomitant]
     Route: 061
     Dates: start: 20120324, end: 20120324
  32. ZOLPIDEM [Concomitant]
     Route: 048
     Dates: start: 20120311, end: 20120404
  33. PREDNISOLONE [Concomitant]
     Dates: start: 20120322, end: 20120324
  34. PREDNISOLONE [Concomitant]
     Dates: start: 20120405, end: 20120406
  35. PREDNISOLONE [Concomitant]
     Dates: start: 20120407, end: 20120407
  36. PREDNISOLONE [Concomitant]
     Dates: start: 20120412, end: 20120418
  37. PEG-INTRON [Concomitant]
     Route: 058
     Dates: start: 20120308, end: 20120308
  38. REBETOL [Concomitant]
     Route: 048
     Dates: start: 20120315, end: 20120328
  39. TALION OD [Concomitant]
     Route: 048
     Dates: start: 20120302, end: 20120307
  40. LANSOPRAZOLE [Concomitant]
     Route: 048
     Dates: start: 20120308, end: 20120318
  41. LANSOPRAZOLE [Concomitant]
     Route: 048
     Dates: start: 20120319, end: 20120321
  42. CLOBETASOL PROPIONATE [Concomitant]
     Route: 061
     Dates: start: 20120314, end: 20120314
  43. ATARAX [Concomitant]
     Route: 065
     Dates: start: 20120308, end: 20120315
  44. LASIX [Concomitant]
     Route: 048
     Dates: start: 20120423, end: 20120516
  45. PREDNISOLONE [Concomitant]
     Dates: start: 20120426, end: 20120508
  46. PEG-INTRON [Concomitant]
     Indication: HEPATITIS C
     Route: 058
     Dates: start: 20120126, end: 20120126
  47. FULMETA: OINTMENT [Concomitant]
     Route: 061
     Dates: start: 20120302, end: 20120302
  48. LANSOPRAZOLE [Concomitant]
     Route: 048
     Dates: start: 20120329, end: 20120401
  49. KINDAVATE [Concomitant]
     Route: 061
     Dates: start: 20120308, end: 20120308
  50. ZOLPIDEM [Concomitant]
     Route: 048
     Dates: start: 20120505, end: 20120511
  51. PREDNISOLONE [Concomitant]
     Dates: start: 20120315, end: 20120320
  52. PREDNISOLONE [Concomitant]
     Dates: start: 20120321, end: 20120321
  53. PREDNISOLONE [Concomitant]
     Dates: start: 20120326, end: 20120328
  54. PREDNISOLONE [Concomitant]
     Dates: start: 20120516, end: 20120516
  55. TELAVIC (TELAPREVIR) [Suspect]
     Indication: HEPATITIS C
     Route: 048
     Dates: start: 20120126, end: 20120314
  56. REBETOL [Concomitant]
     Route: 048
     Dates: start: 20120202, end: 20120312
  57. REBETOL [Concomitant]
     Route: 048
     Dates: start: 20120329
  58. FULMETA: OINTMENT [Concomitant]
     Route: 061
     Dates: start: 20120502, end: 20120502
  59. LANSOPRAZOLE [Concomitant]
     Route: 048
     Dates: start: 20120427, end: 20120515
  60. CLOBETASOL PROPIONATE [Concomitant]
     Route: 061
     Dates: start: 20120310, end: 20120310
  61. NERISONA [Concomitant]
     Route: 051
     Dates: start: 20120308, end: 20120308
  62. NERISONA [Concomitant]
     Route: 051
     Dates: start: 20120311, end: 20120311
  63. ZOLPIDEM [Concomitant]
     Route: 048
     Dates: start: 20120406, end: 20120501
  64. ACETAMINOPHEN [Concomitant]
     Route: 048
     Dates: start: 20120419, end: 20120428
  65. FULMETA: OINTMENT [Concomitant]
     Route: 061
     Dates: start: 20120523, end: 20120523
  66. LANSOPRAZOLE [Concomitant]
     Route: 048
     Dates: start: 20120517, end: 20120612
  67. RIVOTRIL [Concomitant]
     Route: 048
     Dates: start: 20120413, end: 20120429
  68. CYMBALTA [Concomitant]
     Route: 048
     Dates: start: 20120427, end: 20120429
  69. LANSOPRAZOLE [Concomitant]
     Route: 048
     Dates: start: 20120322, end: 20120328
  70. NERISONA [Concomitant]
     Route: 051
     Dates: start: 20120314, end: 20120314
  71. KENALOG [Concomitant]
     Route: 061
     Dates: start: 20120308, end: 20120308
  72. ZOLPIDEM [Concomitant]
     Route: 048
     Dates: start: 20120308, end: 20120309
  73. RIVOTRIL [Concomitant]
     Route: 048
     Dates: start: 20120327, end: 20120402
  74. RIVOTRIL [Concomitant]
     Route: 048
     Dates: start: 20120403, end: 20120411
  75. PREDNISOLONE [Concomitant]
     Dates: start: 20120312, end: 20120314
  76. PREDNISOLONE [Concomitant]
     Dates: start: 20120329, end: 20120404

REACTIONS (6)
  - ANAEMIA [None]
  - WHITE BLOOD CELL COUNT DECREASED [None]
  - ANXIETY DISORDER [None]
  - TOXIC SKIN ERUPTION [None]
  - PLATELET COUNT DECREASED [None]
  - HYPOAESTHESIA [None]
